FAERS Safety Report 5029444-4 (Version None)
Quarter: 2006Q2

REPORT INFORMATION
  Report Type: 
  Country: None (occurrence: None)
  Receive Date: 20060613
  Receipt Date: 20060530
  Transmission Date: 20061013
  Serious: Yes (Other)
  Sender: FDA-Public Use
  Company Number: 2006RR-02450

PATIENT
  Age: 74 Year
  Sex: Female

DRUGS (8)
  1. CEFUROXIME AXETIL [Suspect]
     Dosage: 100 + 1 MG/ML, SUNCONJUNCTIVAL
     Route: 057
  2. PREDNISOLONE [Suspect]
     Indication: POST PROCEDURAL COMPLICATION
     Dosage: 1%, QID, OTHER
  3. LIDOCAINE [Suspect]
     Indication: ANAESTHESIA
     Dosage: INTRAOCULAR
     Route: 031
  4. BUPIVACAINE [Suspect]
     Indication: ANAESTHESIA
     Dosage: INTRAOCULAR
     Route: 031
  5. HYALURONIDASE [Suspect]
     Indication: ANAESTHESIA
     Dosage: INTRAOCULAR
     Route: 031
  6. POVIDONE IODINE [Suspect]
     Indication: PROPHYLAXIS
     Dosage: TOPICAL
     Route: 061
  7. CHLORAMPHENICOL [Suspect]
     Indication: POST PROCEDURAL COMPLICATION
     Dosage: 0.5% X 4, OTHER
  8. PROXYMETACAINE [Concomitant]

REACTIONS (11)
  - CATARACT OPERATION COMPLICATION [None]
  - CONJUNCTIVAL OEDEMA [None]
  - DISORDER OF ORBIT [None]
  - DRUG HYPERSENSITIVITY [None]
  - EXOPHTHALMOS [None]
  - EXTRAOCULAR MUSCLE DISORDER [None]
  - EYELID OEDEMA [None]
  - ORBITAL OEDEMA [None]
  - PAPILLOEDEMA [None]
  - PAROPHTHALMIA [None]
  - VISUAL ACUITY REDUCED [None]
